FAERS Safety Report 21341662 (Version 2)
Quarter: 2022Q3

REPORT INFORMATION
  Report Type: Report from Study
  Country: GB (occurrence: GB)
  Receive Date: 20220916
  Receipt Date: 20220922
  Transmission Date: 20221027
  Serious: Yes (Hospitalization)
  Sender: FDA-Public Use
  Company Number: GB-NOVARTISPH-NVSC2022GB207116

PATIENT
  Sex: Female

DRUGS (1)
  1. HYRIMOZ [Suspect]
     Active Substance: ADALIMUMAB-ADAZ
     Indication: Crohn^s disease
     Dosage: 40 MG, Q2W (EOW), SANDOZ LTD) 2 PRE-FILLED DISPOSABLE INJECTION
     Route: 058

REACTIONS (2)
  - Diabetic complication [Not Recovered/Not Resolved]
  - Abscess [Unknown]
